FAERS Safety Report 11169432 (Version 1)
Quarter: 2015Q2

REPORT INFORMATION
  Report Type: Spontaneous
  Country: US (occurrence: GB)
  Receive Date: 20150605
  Receipt Date: 20150605
  Transmission Date: 20150821
  Serious: Yes (Hospitalization)
  Sender: FDA-Public Use
  Company Number: GB-FRI-1000077204

PATIENT
  Age: 79 Year
  Sex: Female

DRUGS (1)
  1. ACLIDINIUM [Suspect]
     Active Substance: ACLIDINIUM BROMIDE
     Indication: ASTHMA
     Dosage: 322 MCG
     Route: 055

REACTIONS (2)
  - Circumstance or information capable of leading to medication error [Unknown]
  - Dyspnoea [Unknown]
